FAERS Safety Report 8854752 (Version 2)
Quarter: 2013Q1

REPORT INFORMATION
  Report Type: Spontaneous
  Country: DE (occurrence: DE)
  Receive Date: 20121023
  Receipt Date: 20130320
  Transmission Date: 20140127
  Serious: Yes (Death, Life-Threatening, Hospitalization, Other)
  Sender: FDA-Public Use
  Company Number: DE-BRISTOL-MYERS SQUIBB COMPANY-17040619

PATIENT
  Age: 35 Year
  Sex: Male
  Weight: 110 kg

DRUGS (6)
  1. SPRYCEL [Suspect]
     Indication: BLAST CRISIS IN MYELOGENOUS LEUKAEMIA
     Route: 048
     Dates: start: 20111029, end: 20111231
  2. TASIGNA [Suspect]
     Indication: BLAST CRISIS IN MYELOGENOUS LEUKAEMIA
     Route: 048
     Dates: start: 20120111, end: 20120123
  3. COTRIM FORTE [Concomitant]
     Indication: PROPHYLAXIS
     Route: 048
     Dates: start: 20111015, end: 20111231
  4. FRAGMIN [Concomitant]
     Indication: THROMBOSIS PROPHYLAXIS
     Dates: start: 20111230, end: 20120205
  5. TAZOBAC [Concomitant]
     Indication: INFECTION
     Route: 042
     Dates: start: 20120117, end: 20120204
  6. VANCOMYCIN [Concomitant]
     Indication: INFECTION
     Route: 042
     Dates: start: 20110117, end: 20120204

REACTIONS (4)
  - Malignant neoplasm progression [Fatal]
  - Malignant pleural effusion [Not Recovered/Not Resolved]
  - Pericardial effusion malignant [Not Recovered/Not Resolved]
  - Hepatic failure [Unknown]
